FAERS Safety Report 20679328 (Version 1)
Quarter: 2022Q2

REPORT INFORMATION
  Report Type: Spontaneous
  Country: FR (occurrence: None)
  Receive Date: 20220406
  Receipt Date: 20220406
  Transmission Date: 20220720
  Serious: Yes (Hospitalization)
  Sender: FDA-Public Use
  Company Number: 2022A130284

PATIENT
  Age: 65 Year
  Sex: Female
  Weight: 67 kg

DRUGS (3)
  1. QUETIAPINE FUMARATE [Suspect]
     Active Substance: QUETIAPINE FUMARATE
     Indication: Depression
     Dosage: 1/2 TAB PER DAY
     Route: 048
     Dates: start: 202201, end: 20220320
  2. SALAZOPYRINE [Suspect]
     Active Substance: SULFASALAZINE
     Indication: Polyarthritis
     Dosage: 1-0-1 FOR 1 WEEK THEN 1-0-2 FOR 1 WEEK THEN 2-0-2 FOR 3 MONTHS
     Route: 048
     Dates: start: 20220221, end: 20220320
  3. ZOLOFT [Concomitant]
     Active Substance: SERTRALINE HYDROCHLORIDE
     Indication: Depression
     Route: 048

REACTIONS (1)
  - Drug reaction with eosinophilia and systemic symptoms [Recovering/Resolving]

NARRATIVE: CASE EVENT DATE: 20220319
